FAERS Safety Report 19651761 (Version 1)
Quarter: 2021Q3

REPORT INFORMATION
  Report Type: Spontaneous
  Country: US (occurrence: US)
  Receive Date: 20210802
  Receipt Date: 20210802
  Transmission Date: 20211014
  Serious: Yes (Hospitalization)
  Sender: FDA-Public Use
  Company Number: None

PATIENT
  Age: 79 Year
  Sex: Male

DRUGS (1)
  1. REPATHA [Suspect]
     Active Substance: EVOLOCUMAB
     Indication: CARDIAC DISORDER
     Route: 058
     Dates: start: 20201106

REACTIONS (3)
  - Myocardial infarction [None]
  - Abdominal pain upper [None]
  - Pneumonia aspiration [None]

NARRATIVE: CASE EVENT DATE: 202107
